FAERS Safety Report 4974551-5 (Version None)
Quarter: 2006Q2

REPORT INFORMATION
  Report Type: 
  Country: None (occurrence: None)
  Receive Date: 20060410
  Receipt Date: 20060328
  Transmission Date: 20061013
  Serious: Yes (Death, Life-Threatening, Hospitalization)
  Sender: FDA-Public Use
  Company Number: 2006044370

PATIENT
  Age: 53 Year
  Sex: Male
  Weight: 63 kg

DRUGS (21)
  1. SUTENT [Suspect]
     Indication: METASTATIC RENAL CELL CARCINOMA
     Dosage: 50 MG (50 MG, 1IN 1 D), ORAL
     Route: 048
     Dates: start: 20060127, end: 20060223
  2. RED BLOOD CELLS [Concomitant]
  3. CYCLONAMINE (ETAMSILATE) [Concomitant]
  4. EXACYL (TRANEXAMIC ACID) [Concomitant]
  5. RANITIDINE [Concomitant]
  6. MORPHINE [Concomitant]
  7. PLASMA [Concomitant]
  8. HYOSCINE HBR HYT [Concomitant]
  9. HYDROCORTISONE [Concomitant]
  10. PYRALGIN (METAMIZOLE SODIUM) [Concomitant]
  11. ALBUMIN HUMAN (ALBUMIN HUMAN) [Concomitant]
  12. TRAMAOL (TRAMADOL HYDROCHLORIDE) [Concomitant]
  13. AUGMENTIN (AMOXICILLIN TRIHYDRATE, CALVULANATE POTASSIUM) [Concomitant]
  14. MORPHINE MIXTURE (MORPHINE SULFATE) [Concomitant]
  15. CEFTAZIDIME PENTAHYDRATE [Concomitant]
  16. CALCIUM (CALCIUM) [Concomitant]
  17. TRILAC (BIFIDOBACTERIUM BIFIDUM, LACTOBACILLUS ACIDOPHILUS, LACTOBACIL [Concomitant]
  18. DIFLUCAN [Concomitant]
  19. RANIGAST (RANITIDINE HYDROCHLORIDE) [Concomitant]
  20. TAZOCIN (PIPERACILLIN SODIUM, TAZOBACTAM SODIUM) [Concomitant]
  21. OMEPRAZOLE [Concomitant]

REACTIONS (8)
  - BLOOD ALBUMIN DECREASED [None]
  - BLOOD CALCIUM DECREASED [None]
  - GASTROINTESTINAL HAEMORRHAGE [None]
  - HAEMOGLOBIN DECREASED [None]
  - ILEUS [None]
  - PROTHROMBIN TIME PROLONGED [None]
  - RED BLOOD CELL COUNT DECREASED [None]
  - RETROPERITONEAL ABSCESS [None]
